FAERS Safety Report 9590695 (Version 1)
Quarter: 2013Q4

REPORT INFORMATION
  Report Type: Spontaneous
  Country: US (occurrence: US)
  Receive Date: 20131003
  Receipt Date: 20131003
  Transmission Date: 20140711
  Serious: No
  Sender: FDA-Public Use
  Company Number: US-AMGEN-USASP2012076458

PATIENT
  Age: 41 Year
  Sex: Female

DRUGS (2)
  1. ENBREL [Suspect]
     Indication: PSORIASIS
     Dosage: 25 MG, QWK
     Dates: start: 20040101
  2. HUMIRA [Concomitant]
     Dosage: UNK

REACTIONS (5)
  - Skin plaque [Not Recovered/Not Resolved]
  - Skin exfoliation [Not Recovered/Not Resolved]
  - Dyspnoea [Recovered/Resolved]
  - Nasal ulcer [Recovered/Resolved]
  - Fungal infection [Recovered/Resolved]
